FAERS Safety Report 11860247 (Version 1)
Quarter: 2015Q4

REPORT INFORMATION
  Report Type: Spontaneous
  Country: NO (occurrence: NO)
  Receive Date: 20151222
  Receipt Date: 20151222
  Transmission Date: 20160305
  Serious: Yes (Other)
  Sender: FDA-Public Use
  Company Number: NO-PFIZER INC-2015449111

PATIENT
  Age: 33 Year
  Sex: Male

DRUGS (5)
  1. ZELDOX [Suspect]
     Active Substance: ZIPRASIDONE
     Indication: SCHIZOPHRENIA
     Dosage: 100 MG X 2
     Dates: start: 200101, end: 20050101
  2. CIPRALEX [Concomitant]
     Active Substance: ESCITALOPRAM OXALATE
     Dosage: 15 MG, UNK
  3. ALOPAM [Suspect]
     Active Substance: OXAZEPAM
     Indication: ANXIETY
     Dosage: UNK
  4. ALOPAM [Suspect]
     Active Substance: OXAZEPAM
     Indication: DEPRESSION
  5. ZYPREXA [Concomitant]
     Active Substance: OLANZAPINE
     Dosage: 2.5 MG, UNK

REACTIONS (8)
  - Disturbance in attention [Unknown]
  - Obsessive thoughts [Unknown]
  - Impaired driving ability [Unknown]
  - Fear [Unknown]
  - Anxiety [Unknown]
  - Weight increased [Unknown]
  - Drug prescribing error [Unknown]
  - Drug effect incomplete [Unknown]

NARRATIVE: CASE EVENT DATE: 20030101
